FAERS Safety Report 11358886 (Version 1)
Quarter: 2015Q3

REPORT INFORMATION
  Report Type: Spontaneous
  Country: US (occurrence: None)
  Receive Date: 20150709
  Receipt Date: 20150709
  Transmission Date: 20151125
  Serious: Yes (Other)
  Sender: FDA-Public Use
  Company Number: PHEH2015US001748

PATIENT
  Age: 58 Year
  Sex: Male
  Weight: 94.2 kg

DRUGS (4)
  1. GLEEVEC [Suspect]
     Active Substance: IMATINIB MESYLATE
     Indication: CHRONIC MYELOID LEUKAEMIA
     Route: 048
     Dates: start: 20141022, end: 20141125
  2. LASIX [Concomitant]
     Active Substance: FUROSEMIDE
  3. CYMBALTA [Concomitant]
     Active Substance: DULOXETINE HYDROCHLORIDE
  4. K-PHOS NEUTRAL (POTASSIUM PHOSPHATE MONOBASIC, SODIUM PHOSPHATE DIBASIC, SODIUM PHOSPHATE DIBASIC, SODIUM PHOSPHATE MONOBASIC (ANHYDRATE) [Concomitant]

REACTIONS (5)
  - Drug intolerance [None]
  - Headache [None]
  - Vision blurred [None]
  - Drug ineffective [None]
  - Fatigue [None]

NARRATIVE: CASE EVENT DATE: 20141101
